FAERS Safety Report 9367763 (Version 1)
Quarter: 2013Q2

REPORT INFORMATION
  Report Type: Spontaneous
  Country: US (occurrence: US)
  Receive Date: 20130625
  Receipt Date: 20130625
  Transmission Date: 20140414
  Serious: Yes (Hospitalization)
  Sender: FDA-Public Use
  Company Number: US-ASTELLAS-2012US008053

PATIENT
  Sex: Female
  Weight: 113 kg

DRUGS (4)
  1. VESICARE [Suspect]
     Indication: POLLAKIURIA
     Dosage: 10 MG, UID/QD
     Dates: start: 201202
  2. DETROL LA [Suspect]
     Indication: POLLAKIURIA
     Dosage: 4 MG, UID/QD
     Route: 048
     Dates: start: 2009, end: 201202
  3. PREVACID [Concomitant]
     Indication: ULCER
     Dosage: 40 MG, UID/QD
     Route: 065
  4. SENOKOT                            /00142201/ [Concomitant]
     Indication: CONSTIPATION
     Dosage: UNK
     Route: 065

REACTIONS (1)
  - Constipation [Not Recovered/Not Resolved]
